FAERS Safety Report 10337080 (Version 1)
Quarter: 2014Q3

REPORT INFORMATION
  Report Type: Spontaneous
  Country: US (occurrence: US)
  Receive Date: 20140723
  Receipt Date: 20140723
  Transmission Date: 20150326
  Serious: Yes (Disabling)
  Sender: FDA-Public Use
  Company Number: US-ELI_LILLY_AND_COMPANY-US201407006822

PATIENT
  Sex: Female

DRUGS (3)
  1. HUMULIN R [Suspect]
     Active Substance: INSULIN HUMAN
     Indication: DIABETES MELLITUS
     Dosage: 2 IU - 5 IU, EACH EVENING
     Route: 065
     Dates: start: 2011
  2. HUMULIN R [Suspect]
     Active Substance: INSULIN HUMAN
     Dosage: 2 IU - 5 IU, EACH EVENING
     Route: 065
  3. HUMULIN R [Suspect]
     Active Substance: INSULIN HUMAN
     Dosage: 2 IU - 5 IU, EACH EVENING
     Route: 065
     Dates: start: 2014

REACTIONS (5)
  - Incorrect product storage [Unknown]
  - Cerebrovascular accident [Recovered/Resolved with Sequelae]
  - Expired product administered [Unknown]
  - Blood glucose increased [Unknown]
  - Drug ineffective [Unknown]

NARRATIVE: CASE EVENT DATE: 20121125
